FAERS Safety Report 24368149 (Version 1)
Quarter: 2024Q3

REPORT INFORMATION
  Report Type: Report from Study
  Country: JP (occurrence: JP)
  Receive Date: 20240926
  Receipt Date: 20240926
  Transmission Date: 20241017
  Serious: Yes (Other)
  Sender: RECORDATI
  Company Number: JP-RECORDATI RARE DISEASE INC.-2024007356

PATIENT

DRUGS (3)
  1. NEOPROFEN [Suspect]
     Active Substance: IBUPROFEN LYSINE
     Indication: Patent ductus arteriosus
     Dosage: 9.3 MILLIGRAM/KILOGRAM
     Route: 042
     Dates: start: 20191001, end: 20191001
  2. NEOPROFEN [Suspect]
     Active Substance: IBUPROFEN LYSINE
     Dosage: 4.6 MILLIGRAM/KILOGRAM
     Route: 042
     Dates: start: 20191002, end: 20191002
  3. NEOPROFEN [Suspect]
     Active Substance: IBUPROFEN LYSINE
     Dosage: 4.6 MILLIGRAM/KILOGRAM
     Route: 042
     Dates: start: 20191003, end: 20191003

REACTIONS (10)
  - Patent ductus arteriosus [Recovered/Resolved]
  - Hypoxia [Recovering/Resolving]
  - Apnoeic attack [Recovered/Resolved]
  - Hyponatraemia [Recovered/Resolved]
  - Urinary tract infection [Recovered/Resolved]
  - Infection [Recovering/Resolving]
  - Osteopenia [Recovering/Resolving]
  - Umbilical hernia [Unknown]
  - Cleft palate [Unknown]
  - Anaemia [Recovering/Resolving]

NARRATIVE: CASE EVENT DATE: 20191001
